FAERS Safety Report 20129619 (Version 4)
Quarter: 2022Q1

REPORT INFORMATION
  Report Type: Report from Study
  Country: US (occurrence: US)
  Receive Date: 20211130
  Receipt Date: 20220322
  Transmission Date: 20220424
  Serious: Yes (Hospitalization, Other)
  Sender: FDA-Public Use
  Company Number: US-TAKEDA-2021TUS023084

PATIENT
  Sex: Female
  Weight: 79 kg

DRUGS (35)
  1. HUMAN IMMUNOGLOBULIN G [Suspect]
     Active Substance: HUMAN IMMUNOGLOBULIN G
     Indication: Selective IgG subclass deficiency
     Dosage: 20 GRAM, Q2WEEKS
     Route: 058
     Dates: start: 20210320
  2. HUMAN IMMUNOGLOBULIN G [Suspect]
     Active Substance: HUMAN IMMUNOGLOBULIN G
     Indication: Congenital hypogammaglobulinaemia
     Dosage: 16 GRAM, Q2WEEKS
     Route: 058
     Dates: start: 20210320
  3. ADVAIR HFA [Concomitant]
     Active Substance: FLUTICASONE PROPIONATE\SALMETEROL XINAFOATE
     Route: 065
  4. ALBUTEROL SULFATE [Concomitant]
     Active Substance: ALBUTEROL SULFATE
     Route: 065
  5. ALBUTEROL\IPRATROPIUM [Concomitant]
     Active Substance: ALBUTEROL\IPRATROPIUM
     Route: 065
  6. IBUPROFEN [Concomitant]
     Active Substance: IBUPROFEN
     Route: 065
  7. KRILL OIL [Concomitant]
     Active Substance: DIETARY SUPPLEMENT\KRILL OIL
     Route: 065
  8. APPLE CIDER VINEGAR [Concomitant]
     Active Substance: APPLE CIDER VINEGAR
     Route: 065
  9. LIDOCAINE [Concomitant]
     Active Substance: LIDOCAINE
     Route: 065
  10. IMMUNE COMPLEX [Concomitant]
     Route: 065
  11. VITAMIN D3 [Concomitant]
     Active Substance: CHOLECALCIFEROL
     Route: 065
  12. ACETAMINOPHEN [Concomitant]
     Active Substance: ACETAMINOPHEN
     Route: 065
  13. DIPHENHYDRAMINE [Concomitant]
     Active Substance: DIPHENHYDRAMINE
     Route: 065
  14. EPINEPHRINE [Concomitant]
     Active Substance: EPINEPHRINE
     Route: 065
  15. ZYRTEC [Concomitant]
     Active Substance: CETIRIZINE HYDROCHLORIDE
     Route: 065
  16. AMBIEN [Concomitant]
     Active Substance: ZOLPIDEM TARTRATE
     Dosage: UNK
     Route: 065
  17. PEPCID [Concomitant]
     Active Substance: FAMOTIDINE
     Route: 065
  18. CHLORTHALIDONE [Concomitant]
     Active Substance: CHLORTHALIDONE
     Route: 065
  19. ZYRTEC-D [Concomitant]
     Active Substance: CETIRIZINE HYDROCHLORIDE\PSEUDOEPHEDRINE HYDROCHLORIDE
     Dosage: UNK
     Route: 065
  20. BIOTIN [Concomitant]
     Active Substance: BIOTIN
     Route: 065
  21. ALLEGRA-D [FEXOFENADINE;PSEUDOEPHEDRINE HYDROCHLORIDE] [Concomitant]
     Route: 065
  22. LOSARTAN POTASSIUM [Concomitant]
     Active Substance: LOSARTAN POTASSIUM
     Route: 065
  23. PROBIOTICS NOS [Concomitant]
     Active Substance: PROBIOTICS NOS
     Route: 065
  24. AZELASTINE HYDROCHLORIDE\FLUTICASONE PROPIONATE [Concomitant]
     Active Substance: AZELASTINE HYDROCHLORIDE\FLUTICASONE PROPIONATE
     Route: 065
  25. SUPER C [ASCORBIC ACID] [Concomitant]
  26. FLUTICASONE PROPIONATE [Concomitant]
     Active Substance: FLUTICASONE PROPIONATE
  27. FLUTICASONE [Concomitant]
     Active Substance: FLUTICASONE
  28. TRELEGY ELLIPTA [Concomitant]
     Active Substance: FLUTICASONE FUROATE\UMECLIDINIUM BROMIDE\VILANTEROL TRIFENATATE
  29. TUMS FRESHERS [Concomitant]
     Active Substance: CALCIUM CARBONATE
  30. CRANBERRY [Concomitant]
     Active Substance: CRANBERRY
  31. ASCORBIC ACID [Concomitant]
     Active Substance: ASCORBIC ACID
  32. ALLEGRA-D [Concomitant]
     Active Substance: FEXOFENADINE HYDROCHLORIDE\PSEUDOEPHEDRINE HYDROCHLORIDE
  33. LOSARTAN [Concomitant]
     Active Substance: LOSARTAN
  34. TUMS [Concomitant]
     Active Substance: CALCIUM CARBONATE
  35. TRELEGY ELLIPTA [Concomitant]
     Active Substance: FLUTICASONE FUROATE\UMECLIDINIUM BROMIDE\VILANTEROL TRIFENATATE

REACTIONS (13)
  - Cholecystitis [Unknown]
  - Affect lability [Not Recovered/Not Resolved]
  - Dysuria [Not Recovered/Not Resolved]
  - White blood cell count increased [Not Recovered/Not Resolved]
  - Seasonal allergy [Not Recovered/Not Resolved]
  - Infection [Unknown]
  - Infusion site bruising [Recovered/Resolved]
  - Fatigue [Not Recovered/Not Resolved]
  - Infusion site swelling [Recovered/Resolved]
  - Infusion site erythema [Recovered/Resolved]
  - Infusion site pruritus [Recovered/Resolved]
  - Infusion site extravasation [Unknown]
  - Oral fungal infection [Unknown]
